FAERS Safety Report 7400399-8 (Version None)
Quarter: 2011Q2

REPORT INFORMATION
  Report Type: 
  Country: None (occurrence: None)
  Receive Date: 20110407
  Receipt Date: 20110331
  Transmission Date: 20111010
  Serious: Yes (Death, Life-Threatening)
  Sender: FDA-Public Use
  Company Number: DE-JNJFOC-981104-003014360

PATIENT
  Sex: Male
  Weight: 83.6 kg

DRUGS (4)
  1. TRAMADOL HCL [Suspect]
     Indication: PRODUCT USED FOR UNKNOWN INDICATION
     Route: 048
  2. CARBAMAZEPINE [Suspect]
     Indication: PRODUCT USED FOR UNKNOWN INDICATION
     Route: 065
  3. PHENYTOIN [Suspect]
     Indication: PRODUCT USED FOR UNKNOWN INDICATION
     Route: 048
  4. THIORIDAZINE [Suspect]
     Indication: PRODUCT USED FOR UNKNOWN INDICATION
     Route: 065

REACTIONS (8)
  - CONVULSION [None]
  - SYNCOPE [None]
  - PULMONARY OEDEMA [None]
  - PULMONARY TUBERCULOSIS [None]
  - ANALGESIC DRUG LEVEL [None]
  - ASPIRATION [None]
  - DRUG LEVEL ABOVE THERAPEUTIC [None]
  - VERTIGO [None]
